FAERS Safety Report 5106897-4 (Version None)
Quarter: 2006Q3

REPORT INFORMATION
  Report Type: 
  Country: None (occurrence: None)
  Receive Date: 20060913
  Receipt Date: 20060903
  Transmission Date: 20061208
  Serious: Yes (Hospitalization)
  Sender: FDA-Public Use
  Company Number: HQWYE411526JUL06

PATIENT
  Age: 48 Year
  Sex: Female

DRUGS (5)
  1. RAPAMUNE [Suspect]
     Indication: PROPHYLAXIS AGAINST TRANSPLANT REJECTION
     Dosage: 6 MG INITIALLY; 1 MG 1X PER 1 DAY; 2 MG 1X PER 1 DAY
     Route: 048
     Dates: start: 20060101, end: 20060101
  2. RAPAMUNE [Suspect]
     Indication: PROPHYLAXIS AGAINST TRANSPLANT REJECTION
     Dosage: 6 MG INITIALLY; 1 MG 1X PER 1 DAY; 2 MG 1X PER 1 DAY
     Route: 048
     Dates: start: 20060613, end: 20060101
  3. RAPAMUNE [Suspect]
     Indication: PROPHYLAXIS AGAINST TRANSPLANT REJECTION
     Dosage: 6 MG INITIALLY; 1 MG 1X PER 1 DAY; 2 MG 1X PER 1 DAY
     Route: 048
     Dates: start: 20060101, end: 20060824
  4. SANDIMMUNE [Concomitant]
  5. PREDNISONE TAB [Concomitant]

REACTIONS (3)
  - KIDNEY TRANSPLANT REJECTION [None]
  - OEDEMA PERIPHERAL [None]
  - RENAL TUBULAR NECROSIS [None]
